FAERS Safety Report 11606235 (Version 3)
Quarter: 2016Q1

REPORT INFORMATION
  Report Type: Report from Study
  Country: JP (occurrence: JP)
  Receive Date: 20151007
  Receipt Date: 20160328
  Transmission Date: 20160525
  Serious: Yes (Death)
  Sender: FDA-Public Use
  Company Number: JP-TEVA-598927ISR

PATIENT

DRUGS (2)
  1. CISPLATIN. [Suspect]
     Active Substance: CISPLATIN
     Indication: SQUAMOUS CELL CARCINOMA OF LUNG
     Dosage: 80 MG/M2, EVERY 3 WEEKS UP TO 6 CYCLES
     Route: 042
  2. DOCETAXEL. [Suspect]
     Active Substance: DOCETAXEL
     Indication: SQUAMOUS CELL CARCINOMA OF LUNG
     Dosage: 60 MG/M2, EVERY 3 WEEKS UP TO 6 CYCLES
     Route: 042

REACTIONS (1)
  - Cardiac failure [Fatal]
